FAERS Safety Report 8593177 (Version 2)
Quarter: 2012Q4

REPORT INFORMATION
  Report Type: 
  Country: CH (occurrence: CH)
  Receive Date: 20120604
  Receipt Date: 20120829
  Transmission Date: 20130627
  Serious: Yes (Other)
  Sender: FDA-Public Use
  Company Number: CH-RANBAXY-2012RR-56900

PATIENT
  Age: 22 Year
  Sex: Female

DRUGS (3)
  1. VENLAFAXINE [Suspect]
     Indication: AFFECTIVE DISORDER
     Dosage: 150 mg, qd
     Route: 048
     Dates: start: 201201
  2. NAPROXEN [Suspect]
     Indication: PAIN
     Dosage: 25 mg, bid
     Route: 048
     Dates: start: 20120327, end: 20120403
  3. AMOXICILLIN [Concomitant]
     Indication: TOOTH DISORDER
     Dosage: 125 mg, tid
     Route: 048
     Dates: start: 20120327, end: 20120403

REACTIONS (3)
  - Maternal exposure during pregnancy [Unknown]
  - Self-medication [Unknown]
  - Abortion induced [Recovered/Resolved]
